FAERS Safety Report 8529616-8 (Version None)
Quarter: 2012Q3

REPORT INFORMATION
  Report Type: 
  Country: None (occurrence: None)
  Receive Date: 20120723
  Receipt Date: 20120710
  Transmission Date: 20120928
  Serious: Yes (Other)
  Sender: FDA-Public Use
  Company Number: JP-VERTEX PHARMACEUTICALS INC.-AE-2012-010389

PATIENT
  Age: 59 Year
  Sex: Female

DRUGS (9)
  1. REBETOL [Concomitant]
     Indication: HEPATITIS C
     Route: 048
     Dates: start: 20120518, end: 20120614
  2. URSO 250 [Concomitant]
     Route: 048
  3. PEG-INTRON [Concomitant]
     Route: 058
     Dates: start: 20120622, end: 20120705
  4. TELAVIC (TELAPREVIR) [Suspect]
     Indication: HEPATITIS C
     Route: 048
     Dates: start: 20120518
  5. REBETOL [Concomitant]
     Route: 048
     Dates: start: 20120615, end: 20120628
  6. MICARDIS [Concomitant]
     Route: 048
  7. REBETOL [Concomitant]
     Route: 048
     Dates: start: 20120629
  8. PEG-INTRON [Concomitant]
     Indication: HEPATITIS C
     Route: 058
     Dates: start: 20120518, end: 20120621
  9. PEG-INTRON [Concomitant]
     Route: 058
     Dates: start: 20120706

REACTIONS (1)
  - SKIN EXFOLIATION [None]
